FAERS Safety Report 6402142-8 (Version None)
Quarter: 2009Q4

REPORT INFORMATION
  Report Type: 
  Country: None (occurrence: None)
  Receive Date: 20091015
  Receipt Date: 20091006
  Transmission Date: 20100525
  Serious: Yes (Death)
  Sender: FDA-Public Use
  Company Number: TW-BAXTER-2009BH015439

PATIENT
  Sex: Female

DRUGS (4)
  1. DIANEAL [Suspect]
     Indication: PERITONEAL DIALYSIS
     Route: 033
     Dates: start: 20090901, end: 20090101
  2. DIANEAL [Suspect]
     Route: 033
     Dates: start: 20090801, end: 20090901
  3. EXTRANEAL [Suspect]
     Indication: PERITONEAL DIALYSIS
     Route: 033
     Dates: start: 20090901, end: 20090101
  4. EXTRANEAL [Suspect]
     Route: 033
     Dates: start: 20090801, end: 20090901

REACTIONS (1)
  - DEATH [None]
